FAERS Safety Report 5973658-3 (Version None)
Quarter: 2008Q4

REPORT INFORMATION
  Report Type: 
  Country: None (occurrence: None)
  Receive Date: 20081201
  Receipt Date: 20081119
  Transmission Date: 20090506
  Serious: Yes (Other)
  Sender: FDA-Public Use
  Company Number: FR-ELI_LILLY_AND_COMPANY-FR200811005114

PATIENT
  Age: 51 Year
  Sex: Male

DRUGS (1)
  1. ZYPREXA [Suspect]
     Route: 048
     Dates: start: 20080601

REACTIONS (2)
  - BRAIN STEM AUDITORY EVOKED RESPONSE ABNORMAL [None]
  - HYPOACUSIS [None]
